FAERS Safety Report 20195733 (Version 2)
Quarter: 2021Q4

REPORT INFORMATION
  Report Type: Spontaneous
  Country: US (occurrence: US)
  Receive Date: 20211216
  Receipt Date: 20211231
  Transmission Date: 20220303
  Serious: Yes (Hospitalization)
  Sender: FDA-Public Use
  Company Number: US-TEVA-2021-US-1986973

PATIENT
  Age: 20 Month
  Sex: Female

DRUGS (3)
  1. PREDNISONE [Suspect]
     Active Substance: PREDNISONE
     Indication: Hypercalcaemia
     Route: 065
  2. CALCIUM PHOSPHATE\CHOLECALCIFEROL [Suspect]
     Active Substance: CALCIUM PHOSPHATE\CHOLECALCIFEROL
     Indication: Dental caries
     Dosage: CALCIUM 200MG
     Route: 048
  3. CALCIUM PHOSPHATE\CHOLECALCIFEROL [Suspect]
     Active Substance: CALCIUM PHOSPHATE\CHOLECALCIFEROL
     Indication: Intentional product misuse to child

REACTIONS (9)
  - Hypercalcaemia [Recovering/Resolving]
  - Hypervitaminosis D [Recovering/Resolving]
  - Dysstasia [Recovering/Resolving]
  - Gait inability [Recovering/Resolving]
  - Hypomagnesaemia [Recovering/Resolving]
  - Hyperphosphataemia [Recovering/Resolving]
  - Drug ineffective [Unknown]
  - Intentional overdose [Unknown]
  - Intentional product misuse to child [Unknown]
